FAERS Safety Report 6906419-9 (Version None)
Quarter: 2010Q3

REPORT INFORMATION
  Report Type: 
  Country: None (occurrence: None)
  Receive Date: 20100804
  Receipt Date: 20100728
  Transmission Date: 20110219
  Serious: Yes (Life-Threatening)
  Sender: FDA-Public Use
  Company Number: B0648130A

PATIENT
  Sex: Male

DRUGS (1)
  1. ALKERAN [Suspect]
     Indication: STEM CELL TRANSPLANT
     Dosage: 320MGM2 PER DAY
     Route: 042
     Dates: start: 20100412, end: 20100413

REACTIONS (7)
  - ORAL DISORDER [None]
  - OVERDOSE [None]
  - SKIN DEGENERATIVE DISORDER [None]
  - SKIN DISCOLOURATION [None]
  - SKIN LESION [None]
  - TREMOR [None]
  - VOMITING PROJECTILE [None]
